FAERS Safety Report 9356574 (Version 2)
Quarter: 2013Q2

REPORT INFORMATION
  Report Type: Report from Study
  Country: US (occurrence: US)
  Receive Date: 20130619
  Receipt Date: 20130626
  Transmission Date: 20140414
  Serious: Yes (Hospitalization)
  Sender: FDA-Public Use
  Company Number: PHHO2013US007978

PATIENT
  Age: 67 Year
  Sex: Male
  Weight: 72 kg

DRUGS (4)
  1. AFINITOR [Suspect]
     Indication: METASTATIC RENAL CELL CARCINOMA
     Dosage: 10 MG, QD
     Route: 048
     Dates: start: 20130524, end: 20130607
  2. HYDROXYCHLOROQUINE [Suspect]
     Indication: METASTATIC RENAL CELL CARCINOMA
     Dosage: 600 MG, BID
     Route: 048
     Dates: start: 20130524
  3. TYLENOL [Concomitant]
     Dosage: 500 MG, PRN
     Route: 048
  4. PROZAC [Concomitant]
     Dosage: 40 MG, QD
     Route: 048

REACTIONS (2)
  - Hyperglycaemia [Recovering/Resolving]
  - Renal failure acute [Recovering/Resolving]
